FAERS Safety Report 12207218 (Version 3)
Quarter: 2016Q3

REPORT INFORMATION
  Report Type: Spontaneous
  Country: DE (occurrence: DE)
  Receive Date: 20160324
  Receipt Date: 20160718
  Transmission Date: 20161109
  Serious: Yes (Hospitalization)
  Sender: FDA-Public Use
  Company Number: DE-ACTAVIS-2016-06256

PATIENT
  Age: 77 Year
  Sex: Male
  Weight: 78 kg

DRUGS (6)
  1. FOLINIC ACID [Concomitant]
     Active Substance: LEUCOVORIN
     Indication: METASTASES TO LIVER
     Dosage: 400 MG, UNK (PER 1 DOSE)
     Route: 041
     Dates: start: 20160210, end: 20160224
  2. GRANISETRON [Concomitant]
     Active Substance: GRANISETRON
     Indication: METASTASES TO LIVER
     Dosage: 3 MG, UNK (WITH DEXA IN 1000 ML GLUCOSE)
     Route: 041
     Dates: start: 20160210, end: 20160224
  3. OXALIPLATIN (UNKNOWN) [Suspect]
     Active Substance: OXALIPLATIN
     Indication: METASTASES TO LIVER
     Dosage: 170 MG, UNK (PER 1 DOSE)
     Route: 041
     Dates: start: 20160210, end: 20160224
  4. AVASTIN                            /00848101/ [Concomitant]
     Active Substance: SIMVASTATIN
     Indication: METASTASES TO LIVER
     Dosage: 400 MG, UNK (PER 1 DOSE)
     Route: 041
     Dates: start: 20160210, end: 20160224
  5. 5-FU                               /00098801/ [Concomitant]
     Active Substance: FLUOROURACIL
     Indication: METASTASES TO LIVER
     Dosage: 1200 MG, UNK (PER 1 DOSE)
     Route: 041
     Dates: start: 20160210, end: 20160224
  6. DEXAMETASON                        /00016001/ [Concomitant]
     Indication: METASTASES TO LIVER
     Dosage: 8 MG, UNK (WITH GRANISETRON IN 1000 ML GLUCOSE)
     Route: 041
     Dates: start: 20160210, end: 20160224

REACTIONS (1)
  - Seizure [Unknown]

NARRATIVE: CASE EVENT DATE: 20160224
